FAERS Safety Report 5442450-0 (Version None)
Quarter: 2007Q3

REPORT INFORMATION
  Report Type: 
  Country: None (occurrence: None)
  Receive Date: 20070904
  Receipt Date: 20070823
  Transmission Date: 20080115
  Serious: Yes (Other)
  Sender: FDA-Public Use
  Company Number: AR-PFIZER INC-2007071936

PATIENT
  Sex: Female
  Weight: 85 kg

DRUGS (3)
  1. VARENICLINE TABLETS [Suspect]
     Indication: SMOKING CESSATION THERAPY
     Route: 048
     Dates: start: 20070702, end: 20070806
  2. SALBUTAMOL [Concomitant]
     Route: 045
  3. BUDESONIDE [Concomitant]
     Route: 045

REACTIONS (2)
  - BRONCHOSPASM [None]
  - RASH [None]
